FAERS Safety Report 20911862 (Version 11)
Quarter: 2023Q1

REPORT INFORMATION
  Report Type: Report from Study
  Country: TR (occurrence: None)
  Receive Date: 20220603
  Receipt Date: 20230119
  Transmission Date: 20230417
  Serious: Yes (Hospitalization)
  Sender: FDA-Public Use
  Company Number: TR-ROCHE-3108539

PATIENT
  Age: 77 Year
  Sex: Female
  Weight: 50.4 kg

DRUGS (155)
  1. POLATUZUMAB VEDOTIN [Suspect]
     Active Substance: POLATUZUMAB VEDOTIN
     Indication: Diffuse large B-cell lymphoma
     Dosage: DATE OF MOST RECENT DOSE OF POLATUZUMAB VEDOTIN 76 MG PRIOR TO SAE ONSET: 09/MAY/2022
     Route: 042
     Dates: start: 20220111
  2. RITUXIMAB [Suspect]
     Active Substance: RITUXIMAB
     Indication: Diffuse large B-cell lymphoma
     Dosage: DATE OF MOST RECENT DOSE OF RITUXIMAB 555 MG PRIOR TO SAE ONSET: 09/MAY/2022
     Route: 041
     Dates: start: 20220111
  3. GEMCITABINE [Suspect]
     Active Substance: GEMCITABINE
     Indication: Diffuse large B-cell lymphoma
     Dosage: DATE OF MOST RECENT DOSE OF GEMCITABINE 1110 MG PRIOR TO SAE ONSET: 10/MAY/2022
     Route: 042
     Dates: start: 20220112
  4. OXALIPLATIN [Suspect]
     Active Substance: OXALIPLATIN
     Indication: Diffuse large B-cell lymphoma
     Dosage: DATE OF MOST RECENT DOSE OF OXALIPLATIN 148 MG PRIOR TO SAE ONSET: 10/MAY/2022
     Route: 042
     Dates: start: 20220112
  5. AMBISOME [Suspect]
     Active Substance: AMPHOTERICIN B
     Indication: Pneumonia
     Route: 042
     Dates: start: 20220628
  6. LEVOKAST [Concomitant]
     Indication: Asthma
     Dosage: 5/10 MG
     Route: 048
  7. METOFIN [Concomitant]
     Indication: Diabetes mellitus
     Route: 048
  8. QUANTAVIR [Concomitant]
     Route: 048
  9. VALTREX [Concomitant]
     Active Substance: VALACYCLOVIR HYDROCHLORIDE
     Route: 048
  10. BACTRIM [Concomitant]
     Active Substance: SULFAMETHOXAZOLE\TRIMETHOPRIM
     Route: 048
  11. PANOCER [Concomitant]
     Route: 048
  12. TAMOL (TURKEY) [Concomitant]
     Route: 048
     Dates: start: 20220111, end: 20220111
  13. TAMOL (TURKEY) [Concomitant]
     Route: 042
     Dates: start: 20220102, end: 20220102
  14. TURKTIPSAN FENIRAMIN MALEAT [Concomitant]
     Route: 042
     Dates: start: 20220111, end: 20220111
  15. TURKTIPSAN FENIRAMIN MALEAT [Concomitant]
     Route: 042
     Dates: start: 20220629, end: 20220703
  16. TURKTIPSAN FENIRAMIN MALEAT [Concomitant]
     Route: 042
     Dates: start: 20220720, end: 20220720
  17. PRECORT-LIYO [Concomitant]
     Route: 042
     Dates: start: 20220111, end: 20220111
  18. PRECORT-LIYO [Concomitant]
     Route: 042
     Dates: start: 20220529, end: 20220602
  19. PRECORT-LIYO [Concomitant]
     Route: 042
     Dates: start: 20220628, end: 20220630
  20. PRECORT-LIYO [Concomitant]
     Route: 042
     Dates: start: 20220720, end: 20220721
  21. PRECORT-LIYO [Concomitant]
     Route: 042
     Dates: start: 20220201, end: 20220201
  22. PRECORT-LIYO [Concomitant]
     Route: 042
     Dates: start: 20220309, end: 20220309
  23. PRECORT-LIYO [Concomitant]
     Route: 042
     Dates: start: 20220330, end: 20220330
  24. PRECORT-LIYO [Concomitant]
     Route: 042
     Dates: start: 20220509, end: 20220509
  25. DEKORT [Concomitant]
     Active Substance: DEXAMETHASONE
     Route: 042
     Dates: start: 20220112, end: 20220112
  26. DEKORT [Concomitant]
     Active Substance: DEXAMETHASONE
     Route: 042
     Dates: start: 20220714, end: 20220714
  27. DEKORT [Concomitant]
     Active Substance: DEXAMETHASONE
     Route: 042
     Dates: start: 20220202, end: 20220202
  28. DEKORT [Concomitant]
     Active Substance: DEXAMETHASONE
     Route: 042
     Dates: start: 20220309, end: 20220309
  29. DEKORT [Concomitant]
     Active Substance: DEXAMETHASONE
     Route: 042
     Dates: start: 20220331, end: 20220331
  30. DEKORT [Concomitant]
     Active Substance: DEXAMETHASONE
     Route: 042
     Dates: start: 20221005, end: 20221005
  31. NEOSET (TURKEY) [Concomitant]
     Indication: Neutrophil count decreased
     Route: 042
     Dates: start: 20220112, end: 20220112
  32. NEOSET (TURKEY) [Concomitant]
     Route: 042
     Dates: start: 20220310, end: 20220310
  33. NEOSET (TURKEY) [Concomitant]
     Route: 042
     Dates: start: 20220331, end: 20220331
  34. NEOSET (TURKEY) [Concomitant]
     Route: 042
     Dates: start: 20220510, end: 20220510
  35. FRAVEN [Concomitant]
     Indication: Neutrophil count decreased
     Dosage: 30 MIU/0.5 ML
     Route: 030
     Dates: start: 20220119, end: 20220121
  36. FRAVEN [Concomitant]
     Dosage: 30 MIU/0.5 ML
     Route: 030
     Dates: start: 20220523, end: 20220526
  37. FRAVEN [Concomitant]
     Route: 030
     Dates: start: 20220414, end: 20220414
  38. FRAVEN [Concomitant]
     Route: 042
     Dates: start: 20220210, end: 20220210
  39. LEVOFLOXACIN [Concomitant]
     Active Substance: LEVOFLOXACIN
     Route: 048
     Dates: start: 20220119, end: 20220126
  40. NEUPOGEN [Concomitant]
     Active Substance: FILGRASTIM
     Route: 030
     Dates: start: 20220121, end: 20220124
  41. NEUPOGEN [Concomitant]
     Active Substance: FILGRASTIM
     Route: 030
     Dates: start: 20220211, end: 20220212
  42. NEUPOGEN [Concomitant]
     Active Substance: FILGRASTIM
     Route: 030
     Dates: start: 20220216, end: 20220217
  43. NEUPOGEN [Concomitant]
     Active Substance: FILGRASTIM
     Route: 058
     Dates: start: 20220316, end: 20220318
  44. OKSAPAR [Concomitant]
     Route: 030
     Dates: start: 20220121, end: 20220121
  45. OKSAPAR [Concomitant]
     Route: 058
     Dates: start: 20220216, end: 20220224
  46. OKSAPAR [Concomitant]
     Route: 030
     Dates: start: 20220524, end: 20220607
  47. OKSAPAR [Concomitant]
     Route: 030
     Dates: start: 20220703, end: 20220812
  48. MAGNEZYUM SULFAT [Concomitant]
     Indication: COVID-19
     Route: 042
     Dates: start: 20220122, end: 20220122
  49. MAGNEZYUM SULFAT [Concomitant]
     Indication: Hypomagnesaemia
     Route: 042
     Dates: start: 20220124, end: 20220124
  50. MAGNEZYUM SULFAT [Concomitant]
     Route: 042
     Dates: start: 20220214, end: 20220214
  51. MAGNEZYUM SULFAT [Concomitant]
     Route: 042
     Dates: start: 20220321, end: 20220322
  52. MAGNEZYUM SULFAT [Concomitant]
     Route: 042
     Dates: start: 20221104, end: 20221104
  53. MAGNEZYUM SULFAT [Concomitant]
     Route: 042
     Dates: start: 20220419, end: 20220419
  54. MAGNEZYUM SULFAT [Concomitant]
     Route: 042
     Dates: start: 20220628, end: 20220629
  55. TRAMADOL HYDROCHLORIDE [Concomitant]
     Active Substance: TRAMADOL HYDROCHLORIDE
     Indication: Headache
     Route: 042
     Dates: start: 20220122, end: 20220122
  56. LASIX [Concomitant]
     Active Substance: FUROSEMIDE
     Route: 042
     Dates: start: 20220123, end: 20220123
  57. VANCOTEK [Concomitant]
     Indication: Febrile neutropenia
     Route: 042
     Dates: start: 20220211, end: 20220224
  58. VANCOTEK [Concomitant]
     Indication: Pneumonia
     Route: 042
     Dates: start: 20220411, end: 20220423
  59. VANCOTEK [Concomitant]
     Route: 042
     Dates: start: 20220707, end: 20220721
  60. IPRATOM [Concomitant]
     Indication: Asthma
     Dates: start: 20220210, end: 20220224
  61. IPRATOM [Concomitant]
     Dosage: 250MCG/2ML
     Dates: start: 20220518, end: 20220607
  62. RONKOTOL [Concomitant]
     Indication: Asthma
     Dates: start: 20220210, end: 20220211
  63. RONKOTOL [Concomitant]
     Dates: start: 20220212, end: 20220224
  64. RONKOTOL [Concomitant]
     Dates: start: 20220518, end: 20220531
  65. CORTAIR [Concomitant]
     Indication: Asthma
     Dates: start: 20220210, end: 20220211
  66. CORTAIR [Concomitant]
     Dates: start: 20220212, end: 20220224
  67. CORTAIR [Concomitant]
     Dosage: 0.25MG/ML
     Dates: start: 20220518, end: 20220607
  68. POT-K [Concomitant]
     Indication: COVID-19
     Route: 048
     Dates: start: 20220212, end: 20220212
  69. POT-K [Concomitant]
     Indication: Hypokalaemia
     Route: 048
     Dates: start: 20220213, end: 20220213
  70. POT-K [Concomitant]
     Route: 048
     Dates: start: 20220218, end: 20220219
  71. POT-K [Concomitant]
     Route: 048
     Dates: start: 20220220, end: 20220223
  72. POT-K [Concomitant]
     Route: 048
     Dates: start: 20220427, end: 20220505
  73. POT-K [Concomitant]
     Route: 048
     Dates: start: 20220523, end: 20220525
  74. POT-K [Concomitant]
     Route: 048
     Dates: start: 20220530, end: 20220602
  75. POT-K [Concomitant]
     Route: 048
     Dates: start: 20220727, end: 20220728
  76. POT-K [Concomitant]
     Dosage: 40 TABLET
     Route: 048
     Dates: start: 20220731, end: 20220801
  77. POT-K [Concomitant]
     Dosage: 40 TABLET
     Route: 048
     Dates: start: 20220806, end: 20220807
  78. PLATELETS [Concomitant]
     Active Substance: HUMAN PLATELET, ALLOGENIC
     Indication: Platelet count decreased
     Dosage: 1 UNIT
     Route: 042
     Dates: start: 20220211, end: 20220211
  79. PLATELETS [Concomitant]
     Active Substance: HUMAN PLATELET, ALLOGENIC
     Indication: Thrombocytopenia
     Dosage: 1 UNIT
     Route: 042
     Dates: start: 20220213, end: 20220214
  80. PLATELETS [Concomitant]
     Active Substance: HUMAN PLATELET, ALLOGENIC
     Dosage: 1 UNIT
     Route: 042
     Dates: start: 20220319, end: 20220319
  81. PLATELETS [Concomitant]
     Active Substance: HUMAN PLATELET, ALLOGENIC
     Dosage: 1 UNIT
     Route: 042
     Dates: start: 20220320, end: 20220320
  82. PLATELETS [Concomitant]
     Active Substance: HUMAN PLATELET, ALLOGENIC
     Dosage: 1 UNIT
     Route: 042
     Dates: start: 20220408, end: 20220408
  83. PLATELETS [Concomitant]
     Active Substance: HUMAN PLATELET, ALLOGENIC
     Dosage: 1 UNIT
     Route: 042
     Dates: start: 20220410, end: 20220410
  84. PLATELETS [Concomitant]
     Active Substance: HUMAN PLATELET, ALLOGENIC
     Dosage: 2 UNIT
     Route: 042
     Dates: start: 20220518, end: 20220518
  85. PLATELETS [Concomitant]
     Active Substance: HUMAN PLATELET, ALLOGENIC
     Dosage: 2 UNIT
     Route: 042
     Dates: start: 20220706, end: 20220706
  86. HUMAN RED BLOOD CELL [Concomitant]
     Active Substance: HUMAN RED BLOOD CELL
     Route: 042
     Dates: start: 20220211, end: 20220211
  87. HUMAN RED BLOOD CELL [Concomitant]
     Active Substance: HUMAN RED BLOOD CELL
     Route: 042
     Dates: start: 20220212, end: 20220212
  88. HUMAN RED BLOOD CELL [Concomitant]
     Active Substance: HUMAN RED BLOOD CELL
     Route: 042
     Dates: start: 20220713, end: 20220713
  89. HUMAN RED BLOOD CELL [Concomitant]
     Active Substance: HUMAN RED BLOOD CELL
     Route: 042
     Dates: start: 20220525, end: 20220525
  90. VORICONAZOLE [Concomitant]
     Active Substance: VORICONAZOLE
     Indication: Pneumonia
     Route: 042
     Dates: start: 20220411, end: 20220422
  91. ALDACTONE [Concomitant]
     Active Substance: SPIRONOLACTONE
     Indication: Oedema
     Route: 048
     Dates: start: 20220426, end: 20220505
  92. ALDACTONE [Concomitant]
     Active Substance: SPIRONOLACTONE
     Route: 048
     Dates: start: 20220531, end: 20220602
  93. ALDACTONE [Concomitant]
     Active Substance: SPIRONOLACTONE
     Route: 048
     Dates: start: 20220630
  94. TAZOJECT [Concomitant]
     Indication: Febrile neutropenia
     Route: 042
     Dates: start: 20220411, end: 20220423
  95. TAZOJECT [Concomitant]
     Route: 042
     Dates: start: 20220523, end: 20220525
  96. VFEND [Concomitant]
     Active Substance: VORICONAZOLE
     Indication: Pneumonia
     Route: 042
     Dates: start: 20220526, end: 20220607
  97. POSAGIL [Concomitant]
     Indication: Pneumonia
     Dates: start: 20220607
  98. MOXAI [Concomitant]
     Route: 048
     Dates: start: 20220518, end: 20220525
  99. PANTOPRAZOLE SODIUM [Concomitant]
     Active Substance: PANTOPRAZOLE SODIUM
     Route: 048
     Dates: start: 20220518
  100. ESMAX (TURKEY) [Concomitant]
     Route: 048
     Dates: start: 20220518, end: 20220528
  101. MAGNESIUM SULFATE [Concomitant]
     Active Substance: MAGNESIUM SULFATE
     Indication: Hypomagnesaemia
     Route: 042
     Dates: start: 20220519, end: 20220519
  102. MAGNESIUM SULFATE [Concomitant]
     Active Substance: MAGNESIUM SULFATE
     Route: 042
     Dates: start: 20220628, end: 20220629
  103. MAGNESIUM SULFATE [Concomitant]
     Active Substance: MAGNESIUM SULFATE
     Route: 042
     Dates: start: 20220704, end: 20220704
  104. MAGNESIUM SULFATE [Concomitant]
     Active Substance: MAGNESIUM SULFATE
     Route: 042
     Dates: start: 20220710, end: 20220710
  105. MAGNESIUM SULFATE [Concomitant]
     Active Substance: MAGNESIUM SULFATE
     Route: 042
     Dates: start: 20220714, end: 20220714
  106. MAGNESIUM SULFATE [Concomitant]
     Active Substance: MAGNESIUM SULFATE
     Route: 042
     Dates: start: 20220721, end: 20220721
  107. MAGNESIUM SULFATE [Concomitant]
     Active Substance: MAGNESIUM SULFATE
     Route: 042
     Dates: start: 20220728, end: 20220728
  108. MAGNESIUM SULFATE [Concomitant]
     Active Substance: MAGNESIUM SULFATE
     Route: 042
     Dates: start: 20220803, end: 20220803
  109. MAXIFLU [Concomitant]
     Indication: Candida infection
     Route: 048
     Dates: start: 20220522, end: 20220607
  110. GASVIN [Concomitant]
     Route: 048
     Dates: start: 20220522
  111. FLUKOPOL [Concomitant]
     Indication: Pneumonia
     Route: 042
     Dates: start: 20220522, end: 20220522
  112. FLUKOPOL [Concomitant]
     Route: 042
     Dates: start: 20220523, end: 20220528
  113. VANCOMAX [Concomitant]
     Indication: Febrile neutropenia
     Route: 042
     Dates: start: 20220523, end: 20220525
  114. DUPHALAC [Concomitant]
     Active Substance: LACTULOSE
     Route: 048
     Dates: start: 20220526, end: 20220528
  115. DUPHALAC [Concomitant]
     Active Substance: LACTULOSE
     Dosage: 670MG/ML
     Route: 048
     Dates: start: 20220601, end: 20220607
  116. MEROSID [Concomitant]
     Indication: Pneumonia
     Route: 042
  117. NYSTATIN [Concomitant]
     Active Substance: NYSTATIN
     Indication: Candida infection
     Dosage: DOSE 1E+05 IU
     Route: 048
     Dates: start: 20220520, end: 20220607
  118. LASEMID [Concomitant]
     Dosage: STRENGTH 20MG/2ML
     Route: 042
     Dates: start: 20220601, end: 20220603
  119. LASEMID [Concomitant]
     Route: 042
     Dates: start: 20220704, end: 20220704
  120. LASEMID [Concomitant]
     Route: 042
     Dates: start: 20220707, end: 20221007
  121. LASEMID [Concomitant]
     Route: 042
     Dates: start: 20220713, end: 20220713
  122. NAKOUT [Concomitant]
     Indication: Pneumonia
     Dosage: 300MG/3ML
     Route: 042
     Dates: start: 20220602, end: 20220607
  123. NAKOUT [Concomitant]
     Dosage: 300MG/3ML
     Route: 042
     Dates: start: 20220628, end: 20220701
  124. NAKOUT [Concomitant]
     Dosage: 300MG/3ML
     Route: 042
     Dates: start: 20220704, end: 20220705
  125. PARTEMOL [Concomitant]
     Route: 042
     Dates: start: 20220627, end: 20220628
  126. FLEBOGAMMA [Concomitant]
     Active Substance: HUMAN IMMUNOGLOBULIN G
     Route: 042
     Dates: start: 20220628, end: 20220629
  127. FLEBOGAMMA [Concomitant]
     Active Substance: HUMAN IMMUNOGLOBULIN G
     Route: 042
     Dates: start: 20220721, end: 20220722
  128. PAROL [Concomitant]
     Active Substance: ACETAMINOPHEN
     Indication: Headache
     Route: 042
     Dates: start: 20220122, end: 20220122
  129. PAROL [Concomitant]
     Active Substance: ACETAMINOPHEN
     Indication: COVID-19
     Route: 042
     Dates: start: 20220211, end: 20220211
  130. PAROL [Concomitant]
     Active Substance: ACETAMINOPHEN
     Indication: Abdominal pain upper
     Route: 048
     Dates: start: 20220628, end: 20220703
  131. CIPRALEX [Concomitant]
     Active Substance: ESCITALOPRAM OXALATE
     Route: 048
     Dates: start: 20220627, end: 20220724
  132. NAKOUT [Concomitant]
     Route: 042
     Dates: start: 20220704, end: 20220705
  133. ACETYLCYSTEINE [Concomitant]
     Active Substance: ACETYLCYSTEINE
     Route: 042
     Dates: start: 20220703, end: 20220812
  134. SODIUM CHLORIDE [Concomitant]
     Active Substance: SODIUM CHLORIDE
     Dates: start: 20220714, end: 20220714
  135. GRANSET [Concomitant]
     Dosage: 3MG/3ML
     Route: 042
     Dates: start: 20220714, end: 20220714
  136. TYLOL [Concomitant]
     Route: 048
     Dates: start: 20220720, end: 20220720
  137. ESCITALOPRAM OXALATE [Concomitant]
     Active Substance: ESCITALOPRAM OXALATE
     Route: 048
     Dates: start: 20220723, end: 20220813
  138. FUROMID [Concomitant]
     Route: 042
     Dates: start: 20220725, end: 20220727
  139. FUROMID [Concomitant]
     Route: 042
     Dates: start: 20220308, end: 20220608
  140. GLOGER [Concomitant]
     Route: 047
     Dates: start: 20220725, end: 20220813
  141. ALECAST [Concomitant]
     Route: 048
     Dates: start: 20220725, end: 20220803
  142. SEDOZOLAM [Concomitant]
     Route: 048
     Dates: start: 20220727, end: 20220727
  143. FENTANYL CITRATE [Concomitant]
     Active Substance: FENTANYL CITRATE
     Route: 042
     Dates: start: 20220727, end: 20220727
  144. PROPOFOL [Concomitant]
     Active Substance: PROPOFOL
     Route: 042
     Dates: start: 20220727, end: 20220727
  145. PRICAIN (TURKEY) [Concomitant]
     Route: 042
     Dates: start: 20220727, end: 20220727
  146. LIDONIN [Concomitant]
     Route: 042
     Dates: start: 20220727, end: 20220727
  147. LEXSAN [Concomitant]
     Route: 042
     Dates: start: 20220731, end: 20220813
  148. METICURE [Concomitant]
     Route: 042
     Dates: start: 20220805, end: 20220805
  149. TAZOJECT [Concomitant]
     Route: 042
     Dates: start: 20220727, end: 20220813
  150. PIPERACILLIN SODIUM\TAZOBACTAM SODIUM [Concomitant]
     Active Substance: PIPERACILLIN SODIUM\TAZOBACTAM SODIUM
     Route: 042
     Dates: start: 20220809, end: 20220813
  151. ADRENALIN [Concomitant]
     Active Substance: EPINEPHRINE
     Route: 042
     Dates: start: 20220727, end: 20220727
  152. NEUPOGEN [Concomitant]
     Active Substance: FILGRASTIM
     Route: 030
     Dates: start: 20220316, end: 20220318
  153. ESMAX (TURKEY) [Concomitant]
     Route: 048
     Dates: start: 20220110, end: 20220110
  154. TRAMOSEL [Concomitant]
     Dosage: 100MG/2ML
     Route: 042
     Dates: start: 20220122, end: 20220122
  155. KYTRIL [Concomitant]
     Active Substance: GRANISETRON HYDROCHLORIDE
     Route: 042
     Dates: start: 20220202, end: 20220202

REACTIONS (2)
  - Hypokalaemia [Recovered/Resolved]
  - Hypokalaemia [Recovered/Resolved]

NARRATIVE: CASE EVENT DATE: 20220522
